FAERS Safety Report 13900443 (Version 1)
Quarter: 2017Q3

REPORT INFORMATION
  Report Type: Spontaneous
  Country: US (occurrence: US)
  Receive Date: 20170824
  Receipt Date: 20170824
  Transmission Date: 20171127
  Serious: Yes (Other)
  Sender: FDA-Public Use
  Company Number: PHEH2017US026885

PATIENT
  Sex: Male

DRUGS (4)
  1. AMIODARONE HYDROCHLORIDE. [Suspect]
     Active Substance: AMIODARONE HYDROCHLORIDE
     Indication: ATRIAL FIBRILLATION
     Dosage: 200 MG, UNK
     Route: 048
     Dates: start: 201205
  2. AMIODARONE TEVA [Suspect]
     Active Substance: AMIODARONE
     Indication: ATRIAL FIBRILLATION
     Route: 065
  3. AMIODARONE ZYDUS [Suspect]
     Active Substance: AMIODARONE
     Indication: ATRIAL FIBRILLATION
     Route: 065
  4. AMIODARONE HYDROCHLORIDE. [Suspect]
     Active Substance: AMIODARONE HYDROCHLORIDE
     Indication: ATRIAL FIBRILLATION
     Route: 065

REACTIONS (16)
  - Product use in unapproved indication [Unknown]
  - Weight increased [Unknown]
  - Fatigue [Unknown]
  - Hypothyroidism [Unknown]
  - Pulmonary toxicity [Unknown]
  - Dyspnoea [Unknown]
  - Hepatic enzyme abnormal [Unknown]
  - Weight fluctuation [Unknown]
  - Cough [Unknown]
  - Asthenia [Unknown]
  - Chest pain [Unknown]
  - Amnesia [Unknown]
  - Hepatic function abnormal [Unknown]
  - Syncope [Unknown]
  - Weight decreased [Unknown]
  - Pulmonary hypertension [Unknown]

NARRATIVE: CASE EVENT DATE: 201405
